FAERS Safety Report 12826208 (Version 1)
Quarter: 2016Q4

REPORT INFORMATION
  Report Type: Report from Study
  Country: HU (occurrence: HU)
  Receive Date: 20161006
  Receipt Date: 20161006
  Transmission Date: 20170207
  Serious: Yes (Hospitalization)
  Sender: FDA-Public Use
  Company Number: HU-B.I. PHARMACEUTICALS,INC./RIDGEFIELD-2016-BI-18754BI

PATIENT
  Age: 67 Year
  Sex: Female
  Weight: 88 kg

DRUGS (13)
  1. FUROSEMID [Concomitant]
     Active Substance: FUROSEMIDE
     Indication: HYPERTENSION
     Route: 048
     Dates: start: 20151217
  2. PANTOPRASOL [Concomitant]
     Route: 048
  3. ROSUVASTATIN. [Concomitant]
     Active Substance: ROSUVASTATIN
     Indication: MYOCARDIAL ISCHAEMIA
     Route: 048
     Dates: start: 20151217
  4. KALIUM [Concomitant]
     Active Substance: POTASSIUM CHLORIDE
     Indication: SUPPLEMENTATION THERAPY
     Route: 048
     Dates: start: 20151217
  5. AMIODARONE [Concomitant]
     Active Substance: AMIODARONE
     Indication: ATRIAL FIBRILLATION
     Route: 048
     Dates: start: 20151101, end: 20160720
  6. BISOPROLOL [Concomitant]
     Active Substance: BISOPROLOL
     Indication: HYPERTENSION
     Route: 048
     Dates: start: 20151217
  7. CLOPIDOGREL [Concomitant]
     Active Substance: CLOPIDOGREL BISULFATE
     Indication: MYOCARDIAL ISCHAEMIA
     Route: 048
     Dates: start: 20151217
  8. PERINDOPRIL/INDAPAMID [Concomitant]
     Indication: HYPERTENSION
     Dosage: DOSE PER APP AND DAILY DOSE: 5/1.25MG
     Route: 048
     Dates: start: 20151217
  9. SITAGLIPTIN/METFORMIN [Concomitant]
     Indication: DIABETES MELLITUS
     Dosage: DOSE PER APP AND DAILY DOSE: 100/200MG
     Route: 048
     Dates: start: 20160118
  10. ROSUVASTATIN. [Concomitant]
     Active Substance: ROSUVASTATIN
     Route: 048
     Dates: start: 20151217
  11. TRIMETAZIDIN [Concomitant]
     Indication: MYOCARDIAL ISCHAEMIA
     Route: 048
     Dates: start: 20151217
  12. DABIGATRAN [Suspect]
     Active Substance: DABIGATRAN
     Indication: ATRIAL FIBRILLATION
     Route: 048
     Dates: start: 20151218
  13. PANTOPRASOL [Concomitant]
     Indication: PROPHYLAXIS
     Route: 048
     Dates: start: 20151217

REACTIONS (2)
  - Hepatomegaly [Recovered/Resolved]
  - Atrial fibrillation [Recovered/Resolved]

NARRATIVE: CASE EVENT DATE: 20160118
